FAERS Safety Report 23795345 (Version 1)
Quarter: 2024Q2

REPORT INFORMATION
  Report Type: Spontaneous
  Country: FR (occurrence: FR)
  Receive Date: 20240429
  Receipt Date: 20240429
  Transmission Date: 20240716
  Serious: Yes (Life-Threatening, Other)
  Sender: FDA-Public Use
  Company Number: None

PATIENT
  Age: 14 Year
  Sex: Female

DRUGS (6)
  1. PROPOFOL [Suspect]
     Active Substance: PROPOFOL
     Indication: Anaesthesia
     Dosage: 350 MILLIGRAM
     Route: 042
     Dates: start: 20230406, end: 20230406
  2. SUFENTANIL [Suspect]
     Active Substance: SUFENTANIL
     Indication: Anaesthesia
     Dosage: 30 MICROGRAM
     Route: 042
     Dates: start: 20230406, end: 20230406
  3. DEXAMETHASONE [Suspect]
     Active Substance: DEXAMETHASONE
     Indication: Airway complication of anaesthesia
     Dosage: 8 MILLIGRAM
     Route: 042
     Dates: start: 20230406, end: 20230406
  4. METRONIDAZOLE [Suspect]
     Active Substance: METRONIDAZOLE
     Indication: Antibiotic prophylaxis
     Dosage: 1 GRAM
     Route: 042
     Dates: start: 20230406, end: 20230406
  5. NIMBEX [Suspect]
     Active Substance: CISATRACURIUM BESYLATE
     Indication: Anaesthesia
     Dosage: 10 MILLIGRAM
     Route: 042
     Dates: start: 20230406, end: 20230406
  6. TRANEXAMIC ACID [Suspect]
     Active Substance: TRANEXAMIC ACID
     Indication: Haemorrhage
     Dosage: 2 GRAM
     Route: 042
     Dates: start: 20230406, end: 20230406

REACTIONS (1)
  - Anaphylactic reaction [Recovered/Resolved]

NARRATIVE: CASE EVENT DATE: 20230406
